FAERS Safety Report 8060658 (Version 2)
Quarter: 2012Q4

REPORT INFORMATION
  Report Type: 
  Country: IT (occurrence: IT)
  Receive Date: 20110729
  Receipt Date: 20120928
  Transmission Date: 20130627
  Serious: Yes (Other)
  Sender: FDA-Public Use
  Company Number: PHHY2011IT65392

PATIENT

DRUGS (3)
  1. TASIGNA [Suspect]
     Indication: CHRONIC MYELOID LEUKAEMIA
     Dosage: 800 mg, daily
     Route: 048
     Dates: start: 20100913
  2. INSULIN [Concomitant]
     Dosage: UNK
     Dates: start: 20060101
  3. PANCREX [Concomitant]
     Dosage: 1020 mg, UNK
     Route: 048
     Dates: start: 19960403

REACTIONS (9)
  - Ophthalmoplegia [Recovered/Resolved]
  - Tendon pain [Recovered/Resolved]
  - Headache [Recovered/Resolved]
  - Asthenia [Recovered/Resolved]
  - Decreased appetite [Recovered/Resolved]
  - Dry mouth [Recovered/Resolved]
  - Hyperaesthesia [Recovered/Resolved]
  - Paraesthesia [Recovered/Resolved]
  - Musculoskeletal pain [None]
